FAERS Safety Report 18751412 (Version 1)
Quarter: 2021Q1

REPORT INFORMATION
  Report Type: Spontaneous
  Country: US (occurrence: US)
  Receive Date: 20210118
  Receipt Date: 20210118
  Transmission Date: 20210419
  Serious: No
  Sender: FDA-Public Use
  Company Number: US-TAKEDA-2021TUS002758

PATIENT
  Sex: Male
  Weight: 99.79 kg

DRUGS (19)
  1. OMEPRAZOLE. [Concomitant]
     Active Substance: OMEPRAZOLE
  2. BACTRIM [Concomitant]
     Active Substance: SULFAMETHOXAZOLE\TRIMETHOPRIM
  3. VITAMIN B12 [Concomitant]
     Active Substance: CYANOCOBALAMIN
  4. LIDOCAINE. [Concomitant]
     Active Substance: LIDOCAINE
  5. METFORMIN [Concomitant]
     Active Substance: METFORMIN HYDROCHLORIDE
  6. ACETAMINOPHEN. [Concomitant]
     Active Substance: ACETAMINOPHEN
  7. AZELASTINE. [Concomitant]
     Active Substance: AZELASTINE HYDROCHLORIDE
  8. DILTIAZEM. [Concomitant]
     Active Substance: DILTIAZEM
  9. CUVITRU [Suspect]
     Active Substance: HUMAN IMMUNOGLOBULIN G
     Indication: MYASTHENIA GRAVIS
  10. VITAMIN D2 [Concomitant]
     Active Substance: ERGOCALCIFEROL
  11. KETOCONAZOLE. [Concomitant]
     Active Substance: KETOCONAZOLE
  12. FIBER LAX [Concomitant]
     Active Substance: CALCIUM POLYCARBOPHIL
  13. PREDNISONE. [Concomitant]
     Active Substance: PREDNISONE
  14. CUVITRU [Suspect]
     Active Substance: HUMAN IMMUNOGLOBULIN G
     Indication: CHRONIC HEPATITIS C
     Dosage: 40 GRAM, 1/WEEK
     Route: 058
     Dates: start: 20210108
  15. DIPHENHYDRAMINE. [Concomitant]
     Active Substance: DIPHENHYDRAMINE
  16. EPINEPHRINE. [Concomitant]
     Active Substance: EPINEPHRINE
  17. PYRIDOSTIGMINE [Concomitant]
     Active Substance: PYRIDOSTIGMINE
  18. FOLIC ACID B?6 + B?12 [Concomitant]
  19. CALCIUM + D3 [CALCIUM CARBONATE;COLECALCIFEROL] [Concomitant]

REACTIONS (2)
  - Infusion site haemorrhage [Unknown]
  - Infusion site discolouration [Unknown]
